FAERS Safety Report 5267812-6 (Version None)
Quarter: 2007Q1

REPORT INFORMATION
  Report Type: 
  Country: None (occurrence: None)
  Receive Date: 20070316
  Receipt Date: 20070307
  Transmission Date: 20070707
  Serious: Yes (Life-Threatening)
  Sender: FDA-Public Use
  Company Number: FR-PFIZER INC-2007018602

PATIENT
  Age: 60 Year
  Sex: Male

DRUGS (6)
  1. GENOTONORM [Suspect]
     Indication: HYPOPITUITARISM
     Route: 058
     Dates: start: 20030901, end: 20061001
  2. LEVOTHYROXINE SODIUM [Concomitant]
  3. HYDROCORTISONE [Concomitant]
  4. LIPANTHYL [Concomitant]
  5. IRBESARTAN [Concomitant]
  6. CARDENSIEL [Concomitant]

REACTIONS (1)
  - COLON CANCER [None]
